FAERS Safety Report 7078126-6 (Version None)
Quarter: 2010Q4

REPORT INFORMATION
  Report Type: 
  Country: None (occurrence: None)
  Receive Date: 20101102
  Receipt Date: 20101025
  Transmission Date: 20110411
  Serious: No
  Sender: FDA-Public Use
  Company Number: US-BIOGENIDEC-2010BI037642

PATIENT
  Age: 33 Year
  Sex: Female

DRUGS (3)
  1. TYSABRI [Suspect]
     Indication: MULTIPLE SCLEROSIS
     Route: 042
     Dates: start: 20050120, end: 20050120
  2. TYSABRI [Suspect]
     Route: 042
     Dates: start: 20060905, end: 20080723
  3. TYSABRI [Suspect]
     Route: 042
     Dates: start: 20090417

REACTIONS (1)
  - FATIGUE [None]
